FAERS Safety Report 4480310-2 (Version None)
Quarter: 2004Q3

REPORT INFORMATION
  Report Type: 
  Country: None (occurrence: None)
  Receive Date: 20040923
  Receipt Date: 20040628
  Transmission Date: 20050211
  Serious: No
  Sender: FDA-Public Use
  Company Number: USA030946382

PATIENT
  Age: 59 Year
  Sex: Female
  Weight: 46 kg

DRUGS (6)
  1. FORTEO [Suspect]
     Dosage: 20 UG DAY
     Dates: start: 20030801
  2. CITRACAL + D [Concomitant]
  3. CONJUGATED ESTROGEN [Concomitant]
  4. PREMARIN [Concomitant]
  5. PLAVIX [Concomitant]
  6. CELEBREX [Concomitant]

REACTIONS (8)
  - DIZZINESS [None]
  - DYSGEUSIA [None]
  - HEART RATE INCREASED [None]
  - INJECTION SITE HAEMORRHAGE [None]
  - INJECTION SITE PAIN [None]
  - NAUSEA [None]
  - RASH [None]
  - VISUAL DISTURBANCE [None]
